FAERS Safety Report 22984506 (Version 4)
Quarter: 2024Q2

REPORT INFORMATION
  Report Type: Other
  Country: ES (occurrence: ES)
  Receive Date: 20230926
  Receipt Date: 20240507
  Transmission Date: 20240715
  Serious: Yes (Hospitalization, Other)
  Sender: FDA-Public Use
  Company Number: ES-ABBVIE-5395408

PATIENT

DRUGS (3)
  1. ADALIMUMAB [Suspect]
     Active Substance: ADALIMUMAB\ISOPROPYL ALCOHOL
     Indication: Axial spondyloarthritis
     Dosage: 40 MILLIGRAM, Q2W
     Route: 065
     Dates: start: 202107, end: 202108
  2. DICLOFENAC [Concomitant]
     Active Substance: DICLOFENAC
     Indication: Axial spondyloarthritis
     Dosage: 75 MILLIGRAM, QD
     Route: 065
  3. ETORICOXIB [Concomitant]
     Active Substance: ETORICOXIB
     Indication: Axial spondyloarthritis
     Dosage: 90 MILLIGRAM, QD
     Route: 065
     Dates: start: 202107

REACTIONS (4)
  - Haemophagocytic lymphohistiocytosis [Unknown]
  - Visceral leishmaniasis [Recovered/Resolved]
  - Visceral leishmaniasis [Recovered/Resolved]
  - Axial spondyloarthritis [Recovering/Resolving]

NARRATIVE: CASE EVENT DATE: 20210101
